FAERS Safety Report 7324677-6 (Version None)
Quarter: 2011Q1

REPORT INFORMATION
  Report Type: 
  Country: None (occurrence: None)
  Receive Date: 20110301
  Receipt Date: 20110214
  Transmission Date: 20110831
  Serious: Yes (Other)
  Sender: FDA-Public Use
  Company Number: NO-TEVA-268857ISR

PATIENT
  Sex: Female

DRUGS (1)
  1. SIMVASTATIN [Suspect]

REACTIONS (3)
  - LIVER FUNCTION TEST ABNORMAL [None]
  - BREAST PAIN [None]
  - ABDOMINAL PAIN UPPER [None]
